FAERS Safety Report 5910561-9 (Version None)
Quarter: 2008Q4

REPORT INFORMATION
  Report Type: 
  Country: None (occurrence: None)
  Receive Date: 20081007
  Receipt Date: 20080314
  Transmission Date: 20090506
  Serious: Yes (Disabling)
  Sender: FDA-Public Use
  Company Number: US-ASTRAZENECA-2008UW05291

PATIENT
  Age: 56 Year
  Sex: Female
  Weight: 117.9 kg

DRUGS (4)
  1. ARIMIDEX [Suspect]
     Indication: BREAST CANCER
     Route: 048
     Dates: start: 20071201, end: 20080201
  2. INSULIN HUMALOG N [Concomitant]
  3. LOTENSIN [Concomitant]
  4. LIPITOR [Concomitant]

REACTIONS (3)
  - ARTHRALGIA [None]
  - FATIGUE [None]
  - PAIN IN EXTREMITY [None]
